FAERS Safety Report 8493715-X (Version None)
Quarter: 2012Q3

REPORT INFORMATION
  Report Type: 
  Country: None (occurrence: None)
  Receive Date: 20120706
  Receipt Date: 20120619
  Transmission Date: 20120928
  Serious: No
  Sender: FDA-Public Use
  Company Number: US-ASTRAZENECA-2012SE41292

PATIENT
  Age: 75 Year
  Sex: Female
  Weight: 49.9 kg

DRUGS (11)
  1. ZOCOR [Concomitant]
     Indication: BLOOD CHOLESTEROL INCREASED
  2. MULTI-VITAMINS [Concomitant]
  3. CALCIUM WITH MAGNESIUM AND VTAMIN D [Concomitant]
  4. TIMOLOL MALATE [Concomitant]
     Indication: HYPERTENSION
  5. ASCORBIC ACID [Concomitant]
  6. NEXIUM [Suspect]
     Indication: GASTROOESOPHAGEAL REFLUX DISEASE
     Route: 048
     Dates: start: 20120614, end: 20120619
  7. ACIDOPHILIS [Concomitant]
  8. FISH OIL [Concomitant]
  9. COQ10 [Concomitant]
  10. VITAMIN D [Concomitant]
  11. BENADRYL [Concomitant]

REACTIONS (12)
  - SPEECH DISORDER [None]
  - LIP SWELLING [None]
  - BURNING SENSATION [None]
  - HAEMORRHOIDS [None]
  - ABDOMINAL DISTENSION [None]
  - DYSPEPSIA [None]
  - HEADACHE [None]
  - SWOLLEN TONGUE [None]
  - DISCOMFORT [None]
  - BREAST ENLARGEMENT [None]
  - STOMATITIS [None]
  - GLOSSODYNIA [None]
